FAERS Safety Report 5614125-6 (Version None)
Quarter: 2008Q1

REPORT INFORMATION
  Report Type: 
  Country: None (occurrence: None)
  Receive Date: 20080205
  Receipt Date: 20080124
  Transmission Date: 20080703
  Serious: Yes (Other)
  Sender: FDA-Public Use
  Company Number: HQWYE267721SEP07

PATIENT
  Age: 70 Year
  Sex: Female
  Weight: 64.5 kg

DRUGS (4)
  1. PANTOLOC [Suspect]
     Indication: HELICOBACTER INFECTION
     Route: 048
     Dates: start: 20070907, end: 20070913
  2. PANTOLOC [Suspect]
     Indication: GASTRITIS
  3. CLARITHROMYCIN [Suspect]
     Indication: HELICOBACTER INFECTION
     Route: 048
  4. AMOXICILLIN [Suspect]
     Indication: HELICOBACTER INFECTION
     Route: 048

REACTIONS (6)
  - ABDOMINAL PAIN UPPER [None]
  - CONDITION AGGRAVATED [None]
  - DIARRHOEA [None]
  - DRUG INEFFECTIVE [None]
  - HELICOBACTER INFECTION [None]
  - WEIGHT INCREASED [None]
